FAERS Safety Report 22167115 (Version 3)
Quarter: 2023Q2

REPORT INFORMATION
  Report Type: Spontaneous
  Country: FR (occurrence: FR)
  Receive Date: 20230403
  Receipt Date: 20230619
  Transmission Date: 20230721
  Serious: Yes (Other)
  Sender: FDA-Public Use
  Company Number: None

PATIENT
  Age: 42 Year
  Sex: Female

DRUGS (3)
  1. SPRAVATO [Suspect]
     Active Substance: ESKETAMINE
     Indication: Depression
     Dates: start: 20221206, end: 20221212
  2. SPRAVATO [Suspect]
     Active Substance: ESKETAMINE
     Dates: start: 20221213, end: 20230310
  3. SPRAVATO [Suspect]
     Active Substance: ESKETAMINE
     Dosage: FROM 06-DEC-2022 TO 14-MAR-2023, 2 DOSAGE FORM AND DURATION 98 DAYS
     Dates: end: 20230314

REACTIONS (1)
  - Urinary retention [Recovering/Resolving]

NARRATIVE: CASE EVENT DATE: 20230101
